FAERS Safety Report 5102105-9 (Version None)
Quarter: 2006Q3

REPORT INFORMATION
  Report Type: 
  Country: None (occurrence: None)
  Receive Date: 20060731
  Receipt Date: 20060526
  Transmission Date: 20061208
  Serious: No
  Sender: FDA-Public Use
  Company Number: 2006PV014568

PATIENT
  Age: 69 Year
  Sex: Female
  Weight: 107.9561 kg

DRUGS (7)
  1. BYETTA [Suspect]
     Indication: DIABETES MELLITUS NON-INSULIN-DEPENDENT
     Dosage: SEE IMAGE
     Route: 058
     Dates: start: 20060315, end: 20060401
  2. BYETTA [Suspect]
     Indication: DIABETES MELLITUS NON-INSULIN-DEPENDENT
     Dosage: SEE IMAGE
     Route: 058
     Dates: start: 20060401, end: 20060519
  3. GLUCOVANCE [Concomitant]
  4. ACTOS /USA/ [Concomitant]
  5. AMARYL [Concomitant]
  6. LASIX [Concomitant]
  7. POTASSIUM ACETATE [Concomitant]

REACTIONS (3)
  - ABDOMINAL DISTENSION [None]
  - OEDEMA PERIPHERAL [None]
  - WEIGHT INCREASED [None]
